FAERS Safety Report 18831380 (Version 5)
Quarter: 2024Q2

REPORT INFORMATION
  Report Type: Spontaneous
  Country: PL (occurrence: PL)
  Receive Date: 20210203
  Receipt Date: 20240628
  Transmission Date: 20240716
  Serious: Yes (Hospitalization, Other)
  Sender: FDA-Public Use
  Company Number: PL-SUN PHARMACEUTICAL INDUSTRIES LTD-2021R1-276211

PATIENT
  Age: 42 Year
  Sex: Male

DRUGS (27)
  1. PREGABALIN [Suspect]
     Active Substance: PREGABALIN
     Indication: Pain
     Dosage: 300 MILLIGRAM, BID
     Route: 065
  2. PREGABALIN [Suspect]
     Active Substance: PREGABALIN
     Dosage: 150MG
     Route: 065
  3. GABAPENTIN [Suspect]
     Active Substance: GABAPENTIN
     Indication: Arthralgia
     Dosage: 300 MILLIGRAM, TID
     Route: 065
  4. OXYCODONE [Suspect]
     Active Substance: OXYCODONE\OXYCODONE HYDROCHLORIDE
     Indication: Arthralgia
     Dosage: 80 MILLIGRAM, TID
     Route: 048
  5. OXYCODONE [Suspect]
     Active Substance: OXYCODONE\OXYCODONE HYDROCHLORIDE
     Dosage: 100 MILLIGRAM, TID
     Route: 048
  6. OXYCODONE [Suspect]
     Active Substance: OXYCODONE\OXYCODONE HYDROCHLORIDE
     Dosage: 320 MILLIGRAM, DAILY
     Route: 048
  7. FENTANYL [Suspect]
     Active Substance: FENTANYL\FENTANYL CITRATE
     Indication: Arthralgia
     Dosage: 200 MICROGRAM
     Route: 002
  8. FENTANYL [Suspect]
     Active Substance: FENTANYL\FENTANYL CITRATE
     Dosage: QID
     Route: 065
  9. FENTANYL [Suspect]
     Active Substance: FENTANYL\FENTANYL CITRATE
     Dosage: UNK
     Route: 045
  10. ACETAMINOPHEN [Suspect]
     Active Substance: ACETAMINOPHEN
     Indication: Arthralgia
     Dosage: UNK
     Route: 065
  11. ACETAMINOPHEN [Suspect]
     Active Substance: ACETAMINOPHEN
     Indication: Bone pain
     Route: 065
  12. ACETAMINOPHEN [Suspect]
     Active Substance: ACETAMINOPHEN
     Indication: Mastocytosis
     Route: 065
  13. ACETAMINOPHEN [Suspect]
     Active Substance: ACETAMINOPHEN
     Dosage: UNK
     Route: 065
  14. KETOPROFEN [Suspect]
     Active Substance: KETOPROFEN
     Indication: Arthralgia
     Dosage: UNK
     Route: 065
  15. KETOPROFEN [Suspect]
     Active Substance: KETOPROFEN
     Indication: Mastocytosis
     Route: 065
  16. KETOPROFEN [Suspect]
     Active Substance: KETOPROFEN
     Route: 065
  17. MORPHINE [Suspect]
     Active Substance: MORPHINE
     Indication: Bone pain
     Dosage: UNK
     Route: 065
  18. MORPHINE [Suspect]
     Active Substance: MORPHINE
     Route: 065
  19. IBUPROFEN [Suspect]
     Active Substance: IBUPROFEN
     Indication: Arthralgia
     Dosage: UNK
     Route: 065
  20. IBUPROFEN [Suspect]
     Active Substance: IBUPROFEN
     Indication: Analgesic therapy
  21. METAMIZOLE [Suspect]
     Active Substance: METAMIZOLE
     Indication: Bone pain
     Dosage: UNK
     Route: 065
  22. METAMIZOLE [Suspect]
     Active Substance: METAMIZOLE
     Indication: Mastocytosis
     Route: 065
  23. METAMIZOLE [Suspect]
     Active Substance: METAMIZOLE
     Route: 065
  24. TRAMADOL [Suspect]
     Active Substance: TRAMADOL\TRAMADOL HYDROCHLORIDE
     Indication: Arthralgia
     Dosage: UNK
     Route: 065
  25. TRAMADOL [Suspect]
     Active Substance: TRAMADOL\TRAMADOL HYDROCHLORIDE
     Indication: Mastocytosis
     Dosage: UNK
     Route: 065
  26. TRAMADOL [Suspect]
     Active Substance: TRAMADOL\TRAMADOL HYDROCHLORIDE
     Dosage: UNK
     Route: 065
  27. CLADRIBINE [Concomitant]
     Active Substance: CLADRIBINE
     Indication: Systemic mastocytosis
     Dosage: UNK
     Route: 065

REACTIONS (10)
  - Therapeutic response decreased [Unknown]
  - Constipation [Unknown]
  - Anaphylactic shock [Recovered/Resolved]
  - Therapeutic product effect incomplete [Unknown]
  - Rhinitis allergic [Recovered/Resolved]
  - Toothache [Not Recovered/Not Resolved]
  - Gingival pain [Not Recovered/Not Resolved]
  - Drug dependence [Recovered/Resolved]
  - Drug intolerance [Unknown]
  - Hypersensitivity [Recovered/Resolved]
